FAERS Safety Report 10902079 (Version 1)
Quarter: 2015Q1

REPORT INFORMATION
  Report Type: Report from Study
  Country: US (occurrence: US)
  Receive Date: 20150310
  Receipt Date: 20150310
  Transmission Date: 20150721
  Serious: Yes (Other)
  Sender: FDA-Public Use
  Company Number: US-JNJFOC-20150303907

PATIENT
  Age: 19 Year
  Sex: Female

DRUGS (1)
  1. REMICADE [Suspect]
     Active Substance: INFLIXIMAB
     Indication: PRODUCT USED FOR UNKNOWN INDICATION
     Route: 042
     Dates: start: 201404

REACTIONS (7)
  - Headache [Unknown]
  - Weight decreased [Unknown]
  - Arthralgia [Unknown]
  - Palpitations [Unknown]
  - Hypokinesia [Unknown]
  - Gastrooesophageal reflux disease [Unknown]
  - Anxiety [Unknown]

NARRATIVE: CASE EVENT DATE: 201404
